FAERS Safety Report 8164067 (Version 4)
Quarter: 2015Q4

REPORT INFORMATION
  Report Type: Spontaneous
  Country: US (occurrence: US)
  Receive Date: 20110930
  Receipt Date: 20151013
  Transmission Date: 20160305
  Serious: Yes (Hospitalization, Other)
  Sender: FDA-Public Use
  Company Number: US-ASTRAZENECA-2010SE41259

PATIENT
  Age: 28102 Day
  Sex: Female
  Weight: 61.2 kg

DRUGS (4)
  1. ARIMIDEX [Suspect]
     Active Substance: ANASTROZOLE
     Indication: MASTECTOMY
     Route: 048
     Dates: start: 2005
  2. NEXIUM [Suspect]
     Active Substance: ESOMEPRAZOLE MAGNESIUM
     Indication: DYSPEPSIA
     Route: 048
     Dates: start: 2012
  3. CRESTOR [Suspect]
     Active Substance: ROSUVASTATIN CALCIUM
     Indication: BLOOD CHOLESTEROL INCREASED
     Route: 048
     Dates: start: 2013
  4. BACTRIM [Suspect]
     Active Substance: SULFAMETHOXAZOLE\TRIMETHOPRIM
     Route: 065

REACTIONS (12)
  - Pharyngitis streptococcal [Unknown]
  - Myocardial infarction [Unknown]
  - Weight decreased [Unknown]
  - Herpes zoster oticus [Not Recovered/Not Resolved]
  - Tremor [Unknown]
  - Feeling abnormal [Unknown]
  - Body height decreased [Unknown]
  - Cardiac failure congestive [Unknown]
  - Malaise [Not Recovered/Not Resolved]
  - Drug dose omission [Unknown]
  - Herpes zoster [Unknown]
  - Fatigue [Unknown]

NARRATIVE: CASE EVENT DATE: 20100831
